FAERS Safety Report 18608244 (Version 2)
Quarter: 2021Q1

REPORT INFORMATION
  Report Type: Spontaneous
  Country: US (occurrence: US)
  Receive Date: 20201212
  Receipt Date: 20210323
  Transmission Date: 20210419
  Serious: Yes (Other)
  Sender: FDA-Public Use
  Company Number: NVSC2020US325446

PATIENT
  Sex: Female
  Weight: 111.11 kg

DRUGS (17)
  1. VIVELLE?DOT [Suspect]
     Active Substance: ESTRADIOL
     Indication: PRODUCT USED FOR UNKNOWN INDICATION
     Dosage: UNK
     Route: 065
  2. VITAMIN B12 [Concomitant]
     Active Substance: CYANOCOBALAMIN
     Indication: VITAMIN B12 DEFICIENCY
     Dosage: UNK UNK, QD
     Route: 065
  3. ADDERALL [Concomitant]
     Active Substance: AMPHETAMINE ASPARTATE\AMPHETAMINE SULFATE\DEXTROAMPHETAMINE SACCHARATE\DEXTROAMPHETAMINE SULFATE
     Indication: PRODUCT USED FOR UNKNOWN INDICATION
     Dosage: 10 MG, QD
     Route: 065
  4. ESTRADIOL. [Suspect]
     Active Substance: ESTRADIOL
     Indication: HYSTERECTOMY
     Dosage: 0.037 MG, STARTED A YEAR AFTER MINIVELLE AUG 2014 OR 2015)
     Route: 065
  5. ESTRADIOL. [Suspect]
     Active Substance: ESTRADIOL
     Indication: ATROPHIC VULVOVAGINITIS
     Dosage: 0.037 UNK
     Route: 065
     Dates: start: 202007, end: 202009
  6. ESTRADIOL. [Suspect]
     Active Substance: ESTRADIOL
     Indication: MENOPAUSAL SYMPTOMS
  7. MINIVELLE [Suspect]
     Active Substance: ESTRADIOL
     Indication: ATROPHIC VULVOVAGINITIS
     Dosage: 0.05 MG ( STOPPED 18 MONTHS AGO)
     Route: 065
  8. MINIVELLE [Suspect]
     Active Substance: ESTRADIOL
     Dosage: 0.0375MG (TRANSDERMAL PATCH)
     Route: 065
  9. VIT D [Concomitant]
     Active Substance: VITAMIN D NOS
     Indication: PRODUCT USED FOR UNKNOWN INDICATION
     Dosage: UNK
     Route: 065
  10. ESTRADIOL. [Suspect]
     Active Substance: ESTRADIOL
     Indication: HOT FLUSH
  11. MINIVELLE [Suspect]
     Active Substance: ESTRADIOL
     Indication: HOT FLUSH
     Dosage: 0.037 MG
     Route: 065
     Dates: end: 202007
  12. MINIVELLE [Suspect]
     Active Substance: ESTRADIOL
     Indication: MENOPAUSAL SYMPTOMS
     Dosage: 0.05 MG (TRANSDERMAL PATCH, CUT IN HALF OR IN TO 2/3RD SIZE, CHANGING EVERY 3 DAYS)
     Route: 065
  13. MINIVELLE [Suspect]
     Active Substance: ESTRADIOL
     Dosage: 0.025 MG (TRANSDERMAL PATCH)
     Route: 065
  14. VITAMIN C [Concomitant]
     Active Substance: ASCORBIC ACID
     Indication: PRODUCT USED FOR UNKNOWN INDICATION
     Dosage: UNK
     Route: 065
  15. MINIVELLE [Suspect]
     Active Substance: ESTRADIOL
     Indication: HYSTERECTOMY
     Dosage: 0.037 MG (STARTED IN AUG 2014 OR 2015)
     Route: 065
  16. MINIVELLE [Suspect]
     Active Substance: ESTRADIOL
     Dosage: 0.05MG (TRANSDERMAL PATCH)
     Route: 065
  17. FISH OIL [Concomitant]
     Active Substance: FISH OIL
     Indication: PRODUCT USED FOR UNKNOWN INDICATION
     Dosage: UNK (EVERY ONCE IN A WHILE)
     Route: 065

REACTIONS (14)
  - Illness [Unknown]
  - Dementia [Unknown]
  - Hot flush [Unknown]
  - Alopecia [Unknown]
  - Joint swelling [Recovered/Resolved]
  - Swelling [Recovered/Resolved]
  - Product adhesion issue [Unknown]
  - Post-traumatic stress disorder [Unknown]
  - Swelling face [Recovered/Resolved]
  - Dysarthria [Unknown]
  - Atrophic vulvovaginitis [Unknown]
  - Motor dysfunction [Unknown]
  - Mental impairment [Unknown]
  - Wrong technique in product usage process [Unknown]
